FAERS Safety Report 7996083-2 (Version None)
Quarter: 2011Q4

REPORT INFORMATION
  Report Type: 
  Country: None (occurrence: None)
  Receive Date: 20111220
  Receipt Date: 20111212
  Transmission Date: 20120403
  Serious: Yes (Hospitalization)
  Sender: FDA-Public Use
  Company Number: PHHY2011DE108372

PATIENT
  Sex: Female
  Weight: 70 kg

DRUGS (5)
  1. FLUOROURACIL [Concomitant]
     Dosage: UNK UKN, UNK
     Dates: start: 20110530
  2. RIBOFOLIN [Concomitant]
     Dosage: UNK UKN, UNK
     Dates: start: 20110530
  3. ZOMETA [Suspect]
     Indication: BONE DISORDER
     Dosage: 4 MG, EVERY 4 WEEKS.
     Route: 042
     Dates: start: 20110627
  4. NAVELBINE [Concomitant]
     Dosage: UNK UKN, UNK
     Dates: start: 20110530
  5. HERCEPTIN [Concomitant]
     Dosage: UNK UKN, UNK
     Dates: start: 20090901

REACTIONS (4)
  - BONE PAIN [None]
  - THROMBOSIS [None]
  - URINARY TRACT INFECTION [None]
  - CHEST PAIN [None]
